FAERS Safety Report 11469249 (Version 1)
Quarter: 2015Q3

REPORT INFORMATION
  Report Type: Spontaneous
  Country: US (occurrence: US)
  Receive Date: 20150908
  Receipt Date: 20150908
  Transmission Date: 20151125
  Serious: No
  Sender: FDA-Public Use
  Company Number: US-GLAXOSMITHKLINE-US2015GSK126046

PATIENT
  Sex: Male
  Weight: 87.53 kg

DRUGS (1)
  1. VOTRIENT [Suspect]
     Active Substance: PAZOPANIB HYDROCHLORIDE
     Indication: HYPERPITUITARISM
     Dosage: 800 MG, QD
     Route: 048
     Dates: start: 20150516

REACTIONS (1)
  - Adverse drug reaction [Unknown]
